FAERS Safety Report 5022298-1 (Version None)
Quarter: 2006Q2

REPORT INFORMATION
  Report Type: 
  Country: None (occurrence: None)
  Receive Date: 20060609
  Receipt Date: 20060530
  Transmission Date: 20061013
  Serious: Yes (Hospitalization)
  Sender: FDA-Public Use
  Company Number: CZ-GLAXOSMITHKLINE-B0426574A

PATIENT
  Age: 29 Year
  Sex: Female

DRUGS (3)
  1. FLIXONASE [Suspect]
     Dates: start: 20060524
  2. CETIRIZINE HCL [Concomitant]
     Route: 065
  3. LORATADINE AND PSEUDOEPHEDRINE SULFATE [Concomitant]
     Route: 065

REACTIONS (3)
  - ANAPHYLACTIC SHOCK [None]
  - NAUSEA [None]
  - SYNCOPE [None]
